FAERS Safety Report 8359247-4 (Version None)
Quarter: 2012Q2

REPORT INFORMATION
  Report Type: 
  Country: None (occurrence: None)
  Receive Date: 20120514
  Receipt Date: 20120514
  Transmission Date: 20120825
  Serious: Yes (Other)
  Sender: FDA-Public Use
  Company Number: None

PATIENT
  Age: 31 Year
  Sex: Male
  Weight: 86.1834 kg

DRUGS (1)
  1. PROPECIA [Suspect]
     Indication: ALOPECIA
     Dosage: 1 TABLET DAILY
     Dates: start: 20120301, end: 20120501

REACTIONS (3)
  - BACK PAIN [None]
  - CHROMATURIA [None]
  - RENAL DISORDER [None]
